FAERS Safety Report 10638172 (Version 2)
Quarter: 2014Q4

REPORT INFORMATION
  Report Type: Spontaneous
  Country: BR (occurrence: BR)
  Receive Date: 20141208
  Receipt Date: 20141212
  Transmission Date: 20150529
  Serious: Yes (Other)
  Sender: FDA-Public Use
  Company Number: BR-BAYER-2014-179775

PATIENT
  Age: 15 Year
  Sex: Male
  Weight: 73 kg

DRUGS (2)
  1. MAGNEVISTAN [Suspect]
     Active Substance: GADOPENTETATE DIMEGLUMINE
     Indication: IMAGING PROCEDURE
     Dosage: 15 ML, ONCE
     Route: 042
  2. MAGNEVISTAN [Suspect]
     Active Substance: GADOPENTETATE DIMEGLUMINE
     Indication: HIPPOCAMPAL SCLEROSIS

REACTIONS (3)
  - Respiratory disorder [Recovering/Resolving]
  - Oxygen saturation decreased [Recovering/Resolving]
  - Cough [Recovering/Resolving]

NARRATIVE: CASE EVENT DATE: 20141124
